FAERS Safety Report 24639826 (Version 1)
Quarter: 2024Q4

REPORT INFORMATION
  Report Type: Spontaneous
  Country: US (occurrence: US)
  Receive Date: 20241120
  Receipt Date: 20241120
  Transmission Date: 20250115
  Serious: No
  Sender: PAREXEL
  Company Number: US-COHERUS BIOSCIENCES INC-2024-COH-US000933

PATIENT

DRUGS (1)
  1. UDENYCA [Suspect]
     Active Substance: PEGFILGRASTIM-CBQV
     Indication: Product used for unknown indication
     Dosage: 6 MG/0.6 ML, TWICE PER MONTH
     Route: 058

REACTIONS (3)
  - Injection site pain [Unknown]
  - Product quality issue [Unknown]
  - Device adhesion issue [Unknown]
